FAERS Safety Report 7517267-3 (Version None)
Quarter: 2011Q2

REPORT INFORMATION
  Report Type: 
  Country: None (occurrence: None)
  Receive Date: 20110601
  Receipt Date: 20110525
  Transmission Date: 20111010
  Serious: Yes (Disabling, Other)
  Sender: FDA-Public Use
  Company Number: US-ELI_LILLY_AND_COMPANY-US201007000469

PATIENT
  Sex: Female
  Weight: 117.91 kg

DRUGS (5)
  1. METFORMIN HCL [Concomitant]
     Indication: DIABETES MELLITUS
  2. ESTROGENIC SUBSTANCE [Concomitant]
     Indication: MENOPAUSE
  3. BYETTA [Suspect]
     Dosage: UNK, UNKNOWN
     Dates: start: 20080728, end: 20081121
  4. BYETTA [Suspect]
     Dosage: 5 UG, TID
     Dates: start: 20090209, end: 20090708
  5. ANTIDEPRESSANTS [Concomitant]
     Indication: DEPRESSION

REACTIONS (4)
  - PANCREATITIS CHRONIC [None]
  - PANCREATITIS ACUTE [None]
  - ABDOMINAL PAIN [None]
  - RENAL DISORDER [None]
